FAERS Safety Report 20723964 (Version 1)
Quarter: 2022Q2

REPORT INFORMATION
  Report Type: Spontaneous
  Country: GB (occurrence: GB)
  Receive Date: 20220419
  Receipt Date: 20220419
  Transmission Date: 20220720
  Serious: Yes (Disabling, Other)
  Sender: FDA-Public Use
  Company Number: None

PATIENT

DRUGS (2)
  1. QUETIAPINE FUMARATE [Suspect]
     Active Substance: QUETIAPINE FUMARATE
     Indication: Product used for unknown indication
     Dosage: 75 MILLIGRAM
     Route: 048
     Dates: start: 20180523, end: 202107
  2. ATORVASTATIN CALCIUM [Suspect]
     Active Substance: ATORVASTATIN CALCIUM
     Indication: Product used for unknown indication
     Dosage: 20 MILLIGRAM
     Route: 048
     Dates: start: 20150421, end: 202107

REACTIONS (6)
  - Suicidal ideation [Recovering/Resolving]
  - Mobility decreased [Recovered/Resolved]
  - Tendinous contracture [Recovering/Resolving]
  - Headache [Recovering/Resolving]
  - Weight increased [Recovered/Resolved]
  - Dizziness [Recovering/Resolving]
